FAERS Safety Report 6194899-9 (Version None)
Quarter: 2009Q2

REPORT INFORMATION
  Report Type: 
  Country: None (occurrence: None)
  Receive Date: 20090519
  Receipt Date: 20090317
  Transmission Date: 20091009
  Serious: No
  Sender: FDA-Public Use
  Company Number: US-TYCO HEALTHCARE/MALLINCKRODT-T200900685

PATIENT
  Age: 60 Year
  Sex: Male

DRUGS (1)
  1. METHADONE [Suspect]

REACTIONS (1)
  - DYSPNOEA [None]
